FAERS Safety Report 20047161 (Version 2)
Quarter: 2021Q4

REPORT INFORMATION
  Report Type: Spontaneous
  Country: US (occurrence: US)
  Receive Date: 20211109
  Receipt Date: 20211124
  Transmission Date: 20220303
  Serious: No
  Sender: FDA-Public Use
  Company Number: US-BRISTOL-MYERS SQUIBB COMPANY-BMS-2021-114408

PATIENT
  Age: 81 Year
  Sex: Female
  Weight: 75.737 kg

DRUGS (1)
  1. ELIQUIS [Suspect]
     Active Substance: APIXABAN
     Indication: Pulmonary embolism
     Dosage: UNK UNK, BID
     Route: 048
     Dates: start: 202108

REACTIONS (6)
  - Vertigo [Unknown]
  - Dizziness [Unknown]
  - Gingival disorder [Unknown]
  - Headache [Recovered/Resolved]
  - Balance disorder [Unknown]
  - Malaise [Unknown]

NARRATIVE: CASE EVENT DATE: 20211001
